FAERS Safety Report 5566834-5 (Version None)
Quarter: 2007Q4

REPORT INFORMATION
  Report Type: 
  Country: None (occurrence: None)
  Receive Date: 20071219
  Receipt Date: 20071214
  Transmission Date: 20080405
  Serious: Yes (Hospitalization)
  Sender: FDA-Public Use
  Company Number: B0500400A

PATIENT
  Age: 4 Month
  Sex: Female

DRUGS (1)
  1. ZINNAT [Suspect]
     Indication: URINARY TRACT INFECTION
     Dosage: 4ML THREE TIMES PER DAY
     Route: 048
     Dates: start: 20071212, end: 20071214

REACTIONS (2)
  - ANOREXIA [None]
  - DEHYDRATION [None]
